FAERS Safety Report 5027713-5 (Version None)
Quarter: 2006Q2

REPORT INFORMATION
  Report Type: 
  Country: None (occurrence: None)
  Receive Date: 20060428
  Receipt Date: 20060227
  Transmission Date: 20061013
  Serious: No
  Sender: FDA-Public Use
  Company Number: COT_0412_2006

PATIENT
  Age: 57 Year
  Sex: Male
  Weight: 71.6683 kg

DRUGS (5)
  1. VENTAVIS [Suspect]
     Indication: PULMONARY HYPERTENSION
     Dosage: 5 MCG 6XD IH
     Dates: start: 20060222, end: 20060225
  2. SILDENAFIL [Concomitant]
  3. COUMADIN [Concomitant]
  4. MULTIVITAMIN [Concomitant]
  5. FLOLAN [Concomitant]

REACTIONS (3)
  - BLOOD PRESSURE INCREASED [None]
  - DECREASED ACTIVITY [None]
  - DIZZINESS [None]
